FAERS Safety Report 8847356 (Version 1)
Quarter: 2012Q4

REPORT INFORMATION
  Report Type: 
  Country: TR (occurrence: TR)
  Receive Date: 20121018
  Receipt Date: 20121018
  Transmission Date: 20130627
  Serious: Yes (Hospitalization)
  Sender: FDA-Public Use
  Company Number: TR-ROXANE LABORATORIES, INC.-2012-RO-01998RO

PATIENT
  Age: 35 Year
  Sex: Female

DRUGS (3)
  1. CALCITRIOL [Suspect]
     Indication: HYPOPARATHYROIDISM
     Dosage: 0.5 mcg
  2. CALCIUM CARBONATE [Suspect]
     Indication: HYPOPARATHYROIDISM
     Dosage: 2500 mg
  3. LEVOTHYROXIN [Suspect]
     Indication: HYPOPARATHYROIDISM
     Dosage: 50 mcg

REACTIONS (2)
  - Nephrocalcinosis [Recovered/Resolved]
  - Renal failure acute [Recovered/Resolved]
